FAERS Safety Report 21458673 (Version 1)
Quarter: 2022Q4

REPORT INFORMATION
  Report Type: Spontaneous
  Country: US (occurrence: None)
  Receive Date: 20221013
  Receipt Date: 20221013
  Transmission Date: 20230113
  Serious: Yes (Other)
  Sender: FDA-Public Use
  Company Number: None

PATIENT
  Age: 19 Year
  Sex: Male
  Weight: 92.5 kg

DRUGS (1)
  1. HUMIRA [Suspect]
     Active Substance: ADALIMUMAB
     Indication: Juvenile idiopathic arthritis
     Dates: start: 20220920

REACTIONS (4)
  - Wheezing [None]
  - Asthma [None]
  - Condition aggravated [None]
  - Post procedural complication [None]

NARRATIVE: CASE EVENT DATE: 20221004
